FAERS Safety Report 10657188 (Version 3)
Quarter: 2014Q4

REPORT INFORMATION
  Report Type: Spontaneous
  Country: US (occurrence: None)
  Receive Date: 20141215
  Receipt Date: 20141229
  Transmission Date: 20150529
  Serious: Yes (Hospitalization, Other)
  Sender: FDA-Public Use
  Company Number: 2014-US-015989

PATIENT
  Age: 60 Year
  Sex: Female
  Weight: 57.1 kg

DRUGS (9)
  1. PRIMIDONE. [Concomitant]
     Active Substance: PRIMIDONE
  2. INDERAL [Concomitant]
     Active Substance: PROPRANOLOL HYDROCHLORIDE
  3. XYREM [Suspect]
     Active Substance: SODIUM OXYBATE
     Indication: NARCOLEPSY
     Route: 048
     Dates: start: 200710, end: 2007
  4. LYRICA [Concomitant]
     Active Substance: PREGABALIN
  5. DEPAKOTE [Concomitant]
     Active Substance: DIVALPROEX SODIUM
  6. POTASSIUM [Concomitant]
     Active Substance: POTASSIUM
  7. LASIX [Concomitant]
     Active Substance: FUROSEMIDE
  8. NEXIUM I.V. [Concomitant]
     Active Substance: ESOMEPRAZOLE SODIUM
  9. MAGNESIUM [Concomitant]
     Active Substance: MAGNESIUM

REACTIONS (14)
  - Fibula fracture [None]
  - Rib fracture [None]
  - Pain in extremity [None]
  - Therapeutic response changed [None]
  - Breast cancer [None]
  - Foot fracture [None]
  - Fall [None]
  - Condition aggravated [None]
  - Vision blurred [None]
  - Prescribed overdose [None]
  - Blepharitis [None]
  - Micturition urgency [None]
  - Visual impairment [None]
  - Memory impairment [None]

NARRATIVE: CASE EVENT DATE: 2012
